FAERS Safety Report 16865439 (Version 3)
Quarter: 2019Q4

REPORT INFORMATION
  Report Type: Spontaneous
  Country: JP (occurrence: JP)
  Receive Date: 20190930
  Receipt Date: 20191114
  Transmission Date: 20200122
  Serious: Yes (Death, Other)
  Sender: FDA-Public Use
  Company Number: JP-TAKEDA-2019TJP016779

PATIENT
  Age: 2 Decade

DRUGS (1)
  1. ENTYVIO [Suspect]
     Active Substance: VEDOLIZUMAB
     Indication: PROPHYLAXIS AGAINST GRAFT VERSUS HOST DISEASE
     Dosage: 300 MILLIGRAM
     Route: 042
     Dates: start: 20190718

REACTIONS (3)
  - Acute lymphocytic leukaemia [Fatal]
  - Condition aggravated [Fatal]
  - Off label use [Unknown]

NARRATIVE: CASE EVENT DATE: 20190718
